FAERS Safety Report 4459271-8 (Version None)
Quarter: 2004Q3

REPORT INFORMATION
  Report Type: 
  Country: None (occurrence: None)
  Receive Date: 20040927
  Receipt Date: 20040916
  Transmission Date: 20050211
  Serious: Yes (Hospitalization)
  Sender: FDA-Public Use
  Company Number: DE-AMGEN-UK091571

PATIENT
  Sex: Female
  Weight: 62 kg

DRUGS (2)
  1. NEUPOGEN [Suspect]
     Indication: CHEMOTHERAPY
     Route: 058
     Dates: start: 20040830
  2. DOCETAXEL [Concomitant]
     Route: 042
     Dates: start: 20040820

REACTIONS (3)
  - BONE PAIN [None]
  - LEUKOPENIA [None]
  - ORAL CANDIDIASIS [None]
